FAERS Safety Report 18694738 (Version 1)
Quarter: 2021Q1

REPORT INFORMATION
  Report Type: Spontaneous
  Country: US (occurrence: US)
  Receive Date: 20210104
  Receipt Date: 20210104
  Transmission Date: 20210419
  Serious: Yes (Death, Other)
  Sender: FDA-Public Use
  Company Number: US-BIOVITRUM-2020US8208

PATIENT
  Age: 69 Year
  Sex: Female

DRUGS (1)
  1. ANAKINRA [Suspect]
     Active Substance: ANAKINRA
     Indication: COVID-19
     Route: 065

REACTIONS (8)
  - Renal impairment [Unknown]
  - Off label use [Unknown]
  - Death [Unknown]
  - Microangiopathic haemolytic anaemia [Unknown]
  - Respiratory failure [Unknown]
  - Thrombocytopenia [Unknown]
  - Hypoxia [Unknown]
  - Anaemia [Unknown]
